FAERS Safety Report 5316051-9 (Version None)
Quarter: 2007Q2

REPORT INFORMATION
  Report Type: 
  Country: None (occurrence: None)
  Receive Date: 20070503
  Receipt Date: 20070419
  Transmission Date: 20071010
  Serious: Yes (Hospitalization)
  Sender: FDA-Public Use
  Company Number: JP-ROCHE-494446

PATIENT
  Age: 24 Year
  Sex: Female

DRUGS (1)
  1. TAMIFLU [Suspect]
     Indication: INFLUENZA
     Route: 048
     Dates: start: 20070417, end: 20070418

REACTIONS (1)
  - DEPRESSED LEVEL OF CONSCIOUSNESS [None]
